FAERS Safety Report 15359536 (Version 1)
Quarter: 2018Q3

REPORT INFORMATION
  Report Type: Report from Study
  Country: US (occurrence: US)
  Receive Date: 20180907
  Receipt Date: 20180907
  Transmission Date: 20181010
  Serious: No
  Sender: FDA-Public Use
  Company Number: US-AMGEN-USASP2018122277

PATIENT
  Age: 55 Year
  Sex: Female

DRUGS (3)
  1. ENBREL [Suspect]
     Active Substance: ETANERCEPT
     Indication: FIBROMYALGIA
  2. ENBREL [Suspect]
     Active Substance: ETANERCEPT
     Indication: PSORIATIC ARTHROPATHY
     Dosage: UNK
     Route: 065
  3. ENBREL [Suspect]
     Active Substance: ETANERCEPT
     Indication: SPONDYLITIS
     Dosage: UNK
     Route: 065
     Dates: end: 201805

REACTIONS (8)
  - Wrong technique in product usage process [Unknown]
  - Arthropathy [Unknown]
  - Injection site pain [Unknown]
  - Injection site haemorrhage [Unknown]
  - Underdose [Unknown]
  - Injection site bruising [Unknown]
  - Hand deformity [Unknown]
  - Incorrect disposal of product [Unknown]
